FAERS Safety Report 16016185 (Version 2)
Quarter: 2019Q1

REPORT INFORMATION
  Report Type: Spontaneous
  Country: PT (occurrence: PT)
  Receive Date: 20190228
  Receipt Date: 20190308
  Transmission Date: 20190418
  Serious: Yes (Other)
  Sender: FDA-Public Use
  Company Number: PT-AUROBINDO-AUR-APL-2019-009733

PATIENT

DRUGS (7)
  1. LOSARTAN. [Suspect]
     Active Substance: LOSARTAN
     Indication: MICROALBUMINURIA
     Dosage: 50 MILLIGRAM, ONCE A DAY
     Route: 065
  2. METFORMIN [Suspect]
     Active Substance: METFORMIN HYDROCHLORIDE
     Dosage: 1000 MILLIGRAM, DAILY, 500 MG, BID
     Route: 065
  3. GEMFIBROZILO [Concomitant]
     Active Substance: GEMFIBROZIL
     Indication: PRODUCT USED FOR UNKNOWN INDICATION
     Dosage: 600 MILLIGRAM, ONCE A DAY
     Route: 065
  4. ENALAPRIL [Suspect]
     Active Substance: ENALAPRIL
     Indication: MICROALBUMINURIA
     Dosage: 10 MILLIGRAM, ONCE A DAY
     Route: 065
  5. METFORMIN [Suspect]
     Active Substance: METFORMIN HYDROCHLORIDE
     Indication: MICROALBUMINURIA
     Dosage: 2 GRAM, DAILY, 1 G, BID
     Route: 065
  6. INSULIN [Suspect]
     Active Substance: INSULIN NOS
     Indication: PRODUCT USED FOR UNKNOWN INDICATION
     Dosage: UNK, UNKNOWN DOSE
     Route: 058
  7. URSODEOXYCHOLIC ACID [Concomitant]
     Active Substance: URSODIOL
     Indication: PRODUCT USED FOR UNKNOWN INDICATION
     Dosage: 1000 MILLIGRAM, ONCE A DAY
     Route: 065

REACTIONS (6)
  - Microalbuminuria [Unknown]
  - Metabolic syndrome [Not Recovered/Not Resolved]
  - Product use in unapproved indication [Unknown]
  - Off label use [Unknown]
  - Condition aggravated [Unknown]
  - No adverse event [Unknown]
